FAERS Safety Report 5431767-1 (Version None)
Quarter: 2007Q3

REPORT INFORMATION
  Report Type: 
  Country: None (occurrence: None)
  Receive Date: 20070830
  Receipt Date: 20070828
  Transmission Date: 20080115
  Serious: Yes (Death, Life-Threatening, Hospitalization)
  Sender: FDA-Public Use
  Company Number: US-SHR-US-2007-016238

PATIENT
  Age: 68 Year
  Sex: Female
  Weight: 57 kg

DRUGS (3)
  1. MAGNEVIST [Suspect]
     Dosage: 20 ML, POWER INJECTOR 2 ML/SEC
     Route: 042
     Dates: start: 20070502, end: 20070502
  2. ADVAIR DISKUS 100/50 [Concomitant]
  3. ALBUTEROL [Concomitant]

REACTIONS (3)
  - CARDIAC ARREST [None]
  - PNEUMOTHORAX [None]
  - RESPIRATORY ARREST [None]
